FAERS Safety Report 4614712-8 (Version None)
Quarter: 2005Q1

REPORT INFORMATION
  Report Type: 
  Country: None (occurrence: None)
  Receive Date: 20050322
  Receipt Date: 20050310
  Transmission Date: 20050727
  Serious: Yes (Hospitalization)
  Sender: FDA-Public Use
  Company Number: JP-JNJFOC-20041100329

PATIENT
  Sex: Female
  Weight: 56 kg

DRUGS (10)
  1. REMICADE [Suspect]
     Route: 042
  2. REMICADE [Suspect]
     Indication: RHEUMATOID ARTHRITIS
     Route: 042
  3. PREDONINE [Suspect]
     Indication: RHEUMATOID ARTHRITIS
     Route: 049
  4. RHEUMATREX [Concomitant]
     Route: 049
  5. RHEUMATREX [Concomitant]
     Route: 049
  6. RHEUMATREX [Concomitant]
     Indication: RHEUMATOID ARTHRITIS
     Route: 049
  7. ADRENOCORTICAL HORMONE [Concomitant]
  8. MUCOSTA [Concomitant]
     Route: 049
  9. ISCOTIN 100 [Concomitant]
     Route: 049
  10. LOXONIN [Concomitant]
     Indication: RHEUMATOID ARTHRITIS
     Route: 049

REACTIONS (5)
  - CANDIDIASIS [None]
  - FUNGUS SPUTUM TEST POSITIVE [None]
  - HERPES ZOSTER [None]
  - PNEUMONIA [None]
  - RASH GENERALISED [None]
